FAERS Safety Report 4630824-7 (Version None)
Quarter: 2005Q2

REPORT INFORMATION
  Report Type: 
  Country: None (occurrence: None)
  Receive Date: 20050406
  Receipt Date: 20050331
  Transmission Date: 20051028
  Serious: No
  Sender: FDA-Public Use
  Company Number: TAP2005Q00531

PATIENT
  Age: 83 Year
  Sex: Female
  Weight: 60.782 kg

DRUGS (4)
  1. PREVPAC [Suspect]
     Indication: HELICOBACTER INFECTION
     Dosage: 0.5 CARD, 2 IN 1 D, PER ORAL
     Route: 048
     Dates: start: 20040101, end: 20040101
  2. ACIPHEX [Concomitant]
  3. LISINOPRIL [Concomitant]
  4. TIAZAC [Concomitant]

REACTIONS (3)
  - DIZZINESS [None]
  - EYE IRRITATION [None]
  - VISION BLURRED [None]
